FAERS Safety Report 24325372 (Version 1)
Quarter: 2024Q3

REPORT INFORMATION
  Report Type: Spontaneous
  Country: US (occurrence: US)
  Receive Date: 20240916
  Receipt Date: 20240916
  Transmission Date: 20241017
  Serious: No
  Sender: KVK-TECH
  Company Number: US-KVK-TECH, INC-20240300021

PATIENT
  Age: 35 Year
  Sex: Female
  Weight: 90.703 kg

DRUGS (1)
  1. OXYCODONE HYDROCHLORIDE [Suspect]
     Active Substance: OXYCODONE HYDROCHLORIDE
     Indication: Pain
     Dosage: UNK, UNKNOWN
     Route: 065
     Dates: start: 202401, end: 202402

REACTIONS (7)
  - Illness [Recovering/Resolving]
  - Pain [Recovered/Resolved]
  - Nausea [Recovering/Resolving]
  - Vomiting [Recovering/Resolving]
  - Drug ineffective [Recovering/Resolving]
  - Therapeutic response changed [Unknown]
  - Product substitution issue [Unknown]

NARRATIVE: CASE EVENT DATE: 20240101
